FAERS Safety Report 11702278 (Version 5)
Quarter: 2016Q4

REPORT INFORMATION
  Report Type: Spontaneous
  Country: JP (occurrence: JP)
  Receive Date: 20151105
  Receipt Date: 20161201
  Transmission Date: 20170206
  Serious: Yes (Hospitalization)
  Sender: FDA-Public Use
  Company Number: JP-SA-2015SA167093

PATIENT
  Age: 75 Year
  Sex: Male
  Weight: 70.5 kg

DRUGS (3)
  1. G-LASTA [Suspect]
     Active Substance: PEGFILGRASTIM
     Dosage: SUBCUTANEOUS INJECTION
     Dates: start: 20151010, end: 20151010
  2. JEVTANA [Suspect]
     Active Substance: CABAZITAXEL
     Indication: HORMONE-REFRACTORY PROSTATE CANCER
     Dosage: 20 TO 25 MG/M2
     Route: 042
     Dates: start: 20151008, end: 20151008
  3. PREDNISOLONE. [Concomitant]
     Active Substance: PREDNISOLONE
     Route: 048
     Dates: start: 201507

REACTIONS (4)
  - Dyspnoea exertional [Recovering/Resolving]
  - Neutrophil count decreased [Recovered/Resolved]
  - Malaise [Unknown]
  - Interstitial lung disease [Recovering/Resolving]

NARRATIVE: CASE EVENT DATE: 20151011
